FAERS Safety Report 5944812-1 (Version None)
Quarter: 2008Q4

REPORT INFORMATION
  Report Type: 
  Country: None (occurrence: None)
  Receive Date: 20081107
  Receipt Date: 20081028
  Transmission Date: 20090506
  Serious: Yes (Death, Hospitalization)
  Sender: FDA-Public Use
  Company Number: US-BAXTER-2008BH009579

PATIENT
  Age: 73 Year
  Sex: Female
  Weight: 48 kg

DRUGS (1)
  1. DIANEAL [Suspect]
     Indication: PERITONEAL DIALYSIS
     Route: 033
     Dates: start: 20000609, end: 20080805

REACTIONS (12)
  - CALCIPHYLAXIS [None]
  - CELLULITIS [None]
  - DEATH [None]
  - DEHYDRATION [None]
  - FAILURE TO THRIVE [None]
  - HYPOTENSION [None]
  - MALNUTRITION [None]
  - PYREXIA [None]
  - SEPSIS [None]
  - SMALL INTESTINAL OBSTRUCTION [None]
  - SOFT TISSUE NECROSIS [None]
  - TACHYCARDIA [None]
